FAERS Safety Report 12188409 (Version 1)
Quarter: 2016Q1

REPORT INFORMATION
  Report Type: Spontaneous
  Country: CN (occurrence: CN)
  Receive Date: 20160317
  Receipt Date: 20160317
  Transmission Date: 20160526
  Serious: Yes (Hospitalization)
  Sender: FDA-Public Use
  Company Number: CN-JNJFOC-20160310472

PATIENT
  Age: 17 Year
  Sex: Female

DRUGS (5)
  1. ESTAZOLAM. [Suspect]
     Active Substance: ESTAZOLAM
     Indication: PRODUCT USED FOR UNKNOWN INDICATION
     Dosage: 2 MG PER NIGHT
     Route: 065
  2. PALIPERIDONE ER [Suspect]
     Active Substance: PALIPERIDONE
     Indication: ACUTE PSYCHOSIS
     Route: 048
  3. PALIPERIDONE ER [Suspect]
     Active Substance: PALIPERIDONE
     Indication: ACUTE PSYCHOSIS
     Route: 048
  4. LITHIUM. [Suspect]
     Active Substance: LITHIUM
     Indication: SUPPLEMENTATION THERAPY
     Dosage: 900 MG/DAY
     Route: 065
  5. PALIPERIDONE ER [Suspect]
     Active Substance: PALIPERIDONE
     Indication: ACUTE PSYCHOSIS
     Route: 048

REACTIONS (3)
  - Psychotic disorder [Recovered/Resolved]
  - Treatment noncompliance [Unknown]
  - Serotonin syndrome [Recovered/Resolved]
